FAERS Safety Report 18784344 (Version 3)
Quarter: 2021Q1

REPORT INFORMATION
  Report Type: Report from Study
  Country: None (occurrence: AU)
  Receive Date: 20210126
  Receipt Date: 20210324
  Transmission Date: 20210419
  Serious: Yes (Hospitalization)
  Sender: FDA-Public Use
  Company Number: AU-ABBVIE-21K-008-3744450-00

PATIENT
  Sex: Male

DRUGS (1)
  1. LUCRIN [Suspect]
     Active Substance: LEUPROLIDE ACETATE
     Indication: PROSTATE CANCER
     Route: 030
     Dates: start: 20200515

REACTIONS (4)
  - Bladder cancer [Not Recovered/Not Resolved]
  - Alopecia [Unknown]
  - Weight decreased [Recovering/Resolving]
  - Burn oesophageal [Recovered/Resolved]
